FAERS Safety Report 5119430-8 (Version None)
Quarter: 2006Q3

REPORT INFORMATION
  Report Type: 
  Country: None (occurrence: None)
  Receive Date: 20060929
  Receipt Date: 20060830
  Transmission Date: 20061208
  Serious: Yes (Other)
  Sender: FDA-Public Use
  Company Number: 2006SP000933

PATIENT
  Age: 54 Year
  Sex: Female
  Weight: 43.9989 kg

DRUGS (5)
  1. PEG-INTRON [Suspect]
     Indication: HEPATITIS C
     Dates: start: 20060227
  2. RIBAVIRIN [Suspect]
     Indication: HEPATITIS C
     Dosage: PO
     Route: 048
     Dates: start: 20060227
  3. BENADRYL [Concomitant]
  4. IBUPROFEN [Concomitant]
  5. TYLENOL W/ CODEINE NO. 3 [Concomitant]

REACTIONS (7)
  - ABDOMINAL PAIN UPPER [None]
  - BLOOD SODIUM DECREASED [None]
  - DEHYDRATION [None]
  - DYSGEUSIA [None]
  - FUNGAL INFECTION [None]
  - WEIGHT DECREASED [None]
  - WHITE BLOOD CELL COUNT DECREASED [None]
